FAERS Safety Report 4280685-3 (Version None)
Quarter: 2004Q1

REPORT INFORMATION
  Report Type: 
  Country: None (occurrence: None)
  Receive Date: 20040127
  Receipt Date: 20040114
  Transmission Date: 20041129
  Serious: Yes (Hospitalization)
  Sender: FDA-Public Use
  Company Number: 2003-BP-07461BP(1)

PATIENT
  Age: 73 Year
  Sex: Male

DRUGS (3)
  1. ATROVENT [Suspect]
     Dosage: (RT), IH
     Route: 055
  2. COMBIVENT [Suspect]
     Dosage: 16 PUFF (RT), IH
     Route: 055
  3. CHOLINERGIC MEDICATION [Concomitant]

REACTIONS (1)
  - AMNESIA [None]
